FAERS Safety Report 5570306-1 (Version None)
Quarter: 2007Q4

REPORT INFORMATION
  Report Type: 
  Country: None (occurrence: None)
  Receive Date: 20071219
  Receipt Date: 20071219
  Transmission Date: 20080405
  Serious: No
  Sender: FDA-Public Use
  Company Number: None

PATIENT
  Sex: Male
  Weight: 94.7 kg

DRUGS (3)
  1. CYTARABINE [Suspect]
     Dosage: 1456 MG
     Dates: end: 20071129
  2. DAUNORUBICIN HCL [Suspect]
     Dosage: 561 MG
     Dates: end: 20071125
  3. ETOPOSIDE [Suspect]
     Dosage: 624 MG
     Dates: end: 20071125

REACTIONS (4)
  - PNEUMONIA BACTERIAL [None]
  - PNEUMONIA FUNGAL [None]
  - RESPIRATORY DISORDER [None]
  - THERAPEUTIC AGENT TOXICITY [None]
